FAERS Safety Report 6548649-4 (Version None)
Quarter: 2010Q1

REPORT INFORMATION
  Report Type: 
  Country: None (occurrence: None)
  Receive Date: 20100124
  Receipt Date: 20090924
  Transmission Date: 20100710
  Serious: No
  Sender: FDA-Public Use
  Company Number: US-ALLERGAN-0913320US

PATIENT
  Age: 58 Year
  Sex: Female

DRUGS (3)
  1. RESTASIS [Suspect]
     Indication: DRY EYE
     Dosage: 1 GTT, BID
     Route: 047
     Dates: start: 20090826
  2. LOTEMAX [Concomitant]
     Indication: EYE INFLAMMATION
  3. FIBERCON [Concomitant]

REACTIONS (4)
  - ARTHRALGIA [None]
  - GOUT [None]
  - JOINT STIFFNESS [None]
  - JOINT SWELLING [None]
